FAERS Safety Report 19390087 (Version 1)
Quarter: 2021Q2

REPORT INFORMATION
  Report Type: Spontaneous
  Country: US (occurrence: US)
  Receive Date: 20210608
  Receipt Date: 20210608
  Transmission Date: 20210717
  Serious: No
  Sender: FDA-Public Use
  Company Number: US-GLAXOSMITHKLINE-US2021117081

PATIENT
  Age: 14 Year
  Sex: Male

DRUGS (1)
  1. NUCALA [Suspect]
     Active Substance: MEPOLIZUMAB
     Indication: ASTHMA
     Dosage: UNK (EVERY 4 WEEKS)
     Route: 058

REACTIONS (3)
  - Abdominal pain [Recovered/Resolved]
  - Reflux gastritis [Recovered/Resolved]
  - Migraine [Recovered/Resolved]
